FAERS Safety Report 4909029-8 (Version None)
Quarter: 2006Q1

REPORT INFORMATION
  Report Type: 
  Country: None (occurrence: None)
  Receive Date: 20060209
  Receipt Date: 20060209
  Transmission Date: 20060701
  Serious: Yes (Life-Threatening)
  Sender: FDA-Public Use
  Company Number: None

PATIENT
  Age: 80 Year
  Sex: Female
  Weight: 46.82 kg

DRUGS (2)
  1. ITRACONAZOLE [Suspect]
     Indication: ASPERGILLOSIS
     Dosage: 200 MG BID PO
     Route: 048
     Dates: start: 20051111, end: 20051118
  2. WARFARIN SODIUM [Concomitant]

REACTIONS (6)
  - DRUG HYPERSENSITIVITY [None]
  - DRUG INTERACTION [None]
  - EPISTAXIS [None]
  - INTERNATIONAL NORMALISED RATIO INCREASED [None]
  - RASH [None]
  - RESPIRATORY FAILURE [None]
